FAERS Safety Report 8243220 (Version 2)
Quarter: 2013Q2

REPORT INFORMATION
  Report Type: Report from Study
  Country: US (occurrence: US)
  Receive Date: 20111114
  Receipt Date: 20130426
  Transmission Date: 20140414
  Serious: Yes (Hospitalization, Disabling)
  Sender: FDA-Public Use
  Company Number: US-ACTELION-A-US2011-51787

PATIENT
  Age: 82 Year
  Sex: Female

DRUGS (2)
  1. TRACLEER [Suspect]
     Indication: PULMONARY ARTERIAL HYPERTENSION
     Dosage: 62.5 MG, BID
     Route: 048
     Dates: start: 20101001
  2. TRACLEER [Suspect]
     Dosage: UNK
     Route: 048
     Dates: start: 20061003

REACTIONS (3)
  - Surgery [Unknown]
  - Compression fracture [Recovering/Resolving]
  - Fall [Unknown]
